FAERS Safety Report 17229777 (Version 1)
Quarter: 2020Q1

REPORT INFORMATION
  Report Type: Report from Study
  Country: IT (occurrence: IT)
  Receive Date: 20200103
  Receipt Date: 20200103
  Transmission Date: 20200409
  Serious: Yes (Hospitalization)
  Sender: FDA-Public Use
  Company Number: IT-ARBOR PHARMACEUTICALS, LLC-IT-2019ARB001751

PATIENT
  Age: 37 Year
  Sex: Male

DRUGS (1)
  1. CIPROFLOXACIN\FLUOCINOLONE ACETONIDE [Suspect]
     Active Substance: CIPROFLOXACIN\FLUOCINOLONE ACETONIDE
     Indication: EAR INFECTION
     Dosage: 3 MG/ML + 0.25 MG/ML, 1 DF, QD
     Route: 061
     Dates: start: 20191001, end: 20191015

REACTIONS (3)
  - Tinnitus [Recovering/Resolving]
  - Asthenia [Recovering/Resolving]
  - Tachycardia [Recovering/Resolving]

NARRATIVE: CASE EVENT DATE: 20191121
